FAERS Safety Report 14009486 (Version 2)
Quarter: 2017Q4

REPORT INFORMATION
  Report Type: Spontaneous
  Country: US (occurrence: US)
  Receive Date: 20170925
  Receipt Date: 20171023
  Transmission Date: 20180321
  Serious: No
  Sender: FDA-Public Use
  Company Number: US-SUNOVION-2017SUN004106

PATIENT
  Sex: Female

DRUGS (1)
  1. ESZOPICLONE. [Suspect]
     Active Substance: ESZOPICLONE
     Dosage: 3 MG, UNK
     Route: 048

REACTIONS (1)
  - Drug ineffective [Unknown]
